FAERS Safety Report 25705202 (Version 2)
Quarter: 2025Q3

REPORT INFORMATION
  Report Type: Spontaneous
  Country: CH (occurrence: CH)
  Receive Date: 20250820
  Receipt Date: 20250903
  Transmission Date: 20251020
  Serious: Yes (Hospitalization, Other)
  Sender: Unknown Manufacturer
  Company Number: CH-MIRUM PHARMACEUTICALS, INC.-CH-MIR-25-00538

PATIENT

DRUGS (10)
  1. LIVMARLI [Suspect]
     Active Substance: MARALIXIBAT CHLORIDE
     Indication: Cholestatic pruritus
     Dosage: 2.25 MILLILITER, QD
     Route: 048
     Dates: start: 20250710, end: 20250712
  2. LIVMARLI [Suspect]
     Active Substance: MARALIXIBAT CHLORIDE
     Dosage: 1 MILLILITER, QD (FIRST SEVEN DAYS)
     Route: 048
     Dates: start: 20250703, end: 20250709
  3. XIFAXAN [Concomitant]
     Active Substance: RIFAXIMIN
     Indication: Product used for unknown indication
     Dosage: 550 MILLIGRAM, BID, MORE THAN 5 YEARS
     Route: 065
  4. ASPIRIN [Concomitant]
     Active Substance: ASPIRIN
     Indication: Product used for unknown indication
     Dosage: 100 MILLIGRAM, QD, SINCE MORE THAN 10 YEARS
     Route: 065
  5. MESALAMINE [Concomitant]
     Active Substance: MESALAMINE
     Indication: Pruritus
     Dosage: 1.2 MILLIGRAM, QD, MORE THAN 10 YEARS
     Route: 065
  6. TIROSINT [Concomitant]
     Active Substance: LEVOTHYROXINE SODIUM
     Indication: Product used for unknown indication
     Dosage: 1.2 MICROGRAM, QD, MORE THAN 10 YEARS
     Route: 065
  7. CIPROFLOXACIN [Concomitant]
     Active Substance: CIPROFLOXACIN
     Indication: Product used for unknown indication
     Route: 065
  8. NEORAL [Concomitant]
     Active Substance: CYCLOSPORINE
     Indication: Product used for unknown indication
     Dosage: 150 MILLIGRAM, BID, SINCE MORE THAN 10 YEARS
     Route: 065
  9. URSODIOL [Concomitant]
     Active Substance: URSODIOL
     Indication: Product used for unknown indication
     Dosage: 500 MILLIGRAM, BID, SINCE MORE THAN 10 YEARS
     Route: 065
  10. NALOXONE [Concomitant]
     Active Substance: NALOXONE
     Indication: Pruritus
     Route: 065

REACTIONS (4)
  - Acute kidney injury [Unknown]
  - Cholestatic pruritus [Unknown]
  - Pneumonia [Unknown]
  - Off label use [Unknown]

NARRATIVE: CASE EVENT DATE: 20250703
